FAERS Safety Report 17481494 (Version 2)
Quarter: 2022Q1

REPORT INFORMATION
  Report Type: Spontaneous
  Country: US (occurrence: US)
  Receive Date: 20200302
  Receipt Date: 20220222
  Transmission Date: 20220423
  Serious: No
  Sender: FDA-Public Use
  Company Number: RO-MMM-SHB507CX

PATIENT
  Sex: Male

DRUGS (1)
  1. OZURDEX [Suspect]
     Active Substance: DEXAMETHASONE
     Indication: Product used for unknown indication
     Dosage: 0.7 MG, SINGLE
     Route: 047

REACTIONS (3)
  - Abnormal sensation in eye [Recovered/Resolved]
  - Recalled product administered [Unknown]
  - Eye inflammation [Recovered/Resolved]
